FAERS Safety Report 5019568-X (Version None)
Quarter: 2006Q2

REPORT INFORMATION
  Report Type: 
  Country: None (occurrence: None)
  Receive Date: 20060531
  Receipt Date: 20060524
  Transmission Date: 20061013
  Serious: Yes (Other)
  Sender: FDA-Public Use
  Company Number: 200610340BFR

PATIENT
  Age: 75 Year
  Sex: Male
  Weight: 77 kg

DRUGS (1)
  1. CIPROFLOXACIN HCL [Suspect]
     Indication: SERRATIA INFECTION
     Dosage: ORAL
     Route: 048
     Dates: start: 20060129, end: 20060201

REACTIONS (4)
  - ERYTHEMA [None]
  - PRURIGO [None]
  - SKIN ULCER [None]
  - TENDON DISORDER [None]
